FAERS Safety Report 9248411 (Version 1)
Quarter: 2013Q1

REPORT INFORMATION
  Report Type: Spontaneous
  Country: US (occurrence: None)
  Receive Date: 20130305
  Receipt Date: 20130305
  Transmission Date: 20140127
  Serious: Yes (Hospitalization, Other)
  Sender: FDA-Public Use
  Company Number: 163-21880-12053555

PATIENT
  Age: 76 Year
  Sex: Female
  Weight: 77.11 kg

DRUGS (3)
  1. REVLIMID [Suspect]
     Indication: PLASMA CELL MYELOMA
     Dosage: 15MG, 14 IN 28 D, PO
     Route: 048
     Dates: start: 20101221
  2. ZOMETA (ZOLEDRONIC ACID) (INJECTION) [Concomitant]
  3. ASA (ACETYLSALICYLIC ACID) [Concomitant]

REACTIONS (13)
  - Arthritis [None]
  - Dyspnoea [None]
  - Local swelling [None]
  - Erythema [None]
  - Cataract [None]
  - Visual impairment [None]
  - Myalgia [None]
  - Myalgia [None]
  - Dysphonia [None]
  - Diarrhoea [None]
  - Oedema peripheral [None]
  - Muscle spasms [None]
  - Herpes zoster [None]
